FAERS Safety Report 6235000-2 (Version None)
Quarter: 2009Q2

REPORT INFORMATION
  Report Type: 
  Country: None (occurrence: None)
  Receive Date: 20090618
  Receipt Date: 20090608
  Transmission Date: 20091009
  Serious: Yes (Hospitalization, Other)
  Sender: FDA-Public Use
  Company Number: US-MYLANLABS-2009S1002893

PATIENT
  Age: 74 Year
  Sex: Male

DRUGS (13)
  1. SPIRONOLACTONE TABLETS, USP [Suspect]
  2. ENALAPRIL [Suspect]
  3. WARFARIN SODIUM [Suspect]
     Indication: THROMBOSIS PROPHYLAXIS
     Route: 048
     Dates: start: 20080523
  4. INVESTIGATIONAL DRUG [Suspect]
     Indication: THROMBOSIS PROPHYLAXIS
  5. CARVEDILOL [Concomitant]
  6. SODIUM BICARBONATE [Concomitant]
     Dates: start: 20090129
  7. CALCIUM RESONIUM [Concomitant]
     Dates: start: 20090129
  8. TORSEMIDE [Concomitant]
  9. GTN SPRAY [Concomitant]
  10. VITAMIN B12 (CYANOCOBALAMIN AND ANALOGUES) [Concomitant]
  11. LEVOTHYROXINE SODIUM [Concomitant]
  12. ALLOPURINOL [Concomitant]
  13. SIMVASTATIN [Concomitant]

REACTIONS (3)
  - CHEST PAIN [None]
  - HYPERKALAEMIA [None]
  - LOWER RESPIRATORY TRACT INFECTION [None]
